FAERS Safety Report 13393462 (Version 6)
Quarter: 2019Q3

REPORT INFORMATION
  Report Type: Spontaneous
  Country: US (occurrence: US)
  Receive Date: 20170331
  Receipt Date: 20190829
  Transmission Date: 20191004
  Serious: No
  Sender: FDA-Public Use
  Company Number: US-PFIZER INC-2017135988

PATIENT
  Age: 55 Year
  Sex: Female

DRUGS (6)
  1. SOMAVERT [Suspect]
     Active Substance: PEGVISOMANT
     Indication: ACROMEGALY
     Dosage: 10 MG, WEEKLY
     Dates: start: 201012
  2. SOMAVERT [Suspect]
     Active Substance: PEGVISOMANT
     Dosage: 20 MG, 2X/WEEK
  3. SANDOSTATIN [Concomitant]
     Active Substance: OCTREOTIDE ACETATE
     Indication: ACROMEGALY
     Dosage: 30 MG, MONTHLY
     Route: 030
     Dates: start: 20160309, end: 20161010
  4. SOMAVERT [Suspect]
     Active Substance: PEGVISOMANT
     Indication: GIGANTISM
     Dosage: 40 MG, 1X/DAY
     Dates: start: 20101220
  5. SOMAVERT [Suspect]
     Active Substance: PEGVISOMANT
     Dosage: 40 MG, 1X/DAY
     Dates: start: 20161010
  6. SOMAVERT [Suspect]
     Active Substance: PEGVISOMANT
     Dosage: 40 MG, DAILY
     Dates: start: 20161207, end: 201707

REACTIONS (4)
  - Off label use [Unknown]
  - Drug ineffective [Unknown]
  - Depression [Unknown]
  - Product use issue [Unknown]

NARRATIVE: CASE EVENT DATE: 20101220
